FAERS Safety Report 9659699 (Version 1)
Quarter: 2013Q4

REPORT INFORMATION
  Report Type: Report from Study
  Country: US (occurrence: US)
  Receive Date: 20131031
  Receipt Date: 20131031
  Transmission Date: 20140711
  Serious: Yes (Hospitalization, Other)
  Sender: FDA-Public Use
  Company Number: US-JNJFOC-20131014983

PATIENT
  Age: 69 Year
  Sex: Male
  Weight: 79.83 kg

DRUGS (12)
  1. REMICADE [Suspect]
     Indication: RHEUMATOID ARTHRITIS
     Route: 042
     Dates: start: 201303
  2. PRADAXA [Concomitant]
     Indication: ANTICOAGULANT THERAPY
     Route: 048
     Dates: start: 2012
  3. LOSARTAN [Concomitant]
     Indication: HYPERTENSION
     Route: 048
  4. PAROXETINE [Concomitant]
     Indication: DEPRESSION
     Route: 048
     Dates: start: 2010
  5. LEVOTHYROXINE [Concomitant]
     Indication: THYROID DISORDER
     Route: 048
     Dates: start: 2012
  6. RAPAFLO [Concomitant]
     Indication: PROSTATOMEGALY
     Route: 065
     Dates: start: 201303
  7. SIMVASTATIN [Concomitant]
     Indication: BLOOD CHOLESTEROL
     Route: 065
     Dates: start: 2011
  8. GLIMEPIRIDE [Concomitant]
     Indication: DIABETES MELLITUS
     Route: 065
  9. LEFLUNOMIDE [Concomitant]
     Indication: ARTHRITIS
     Route: 065
     Dates: start: 2012
  10. LANTUS [Concomitant]
     Indication: DIABETES MELLITUS
     Route: 058
     Dates: start: 2011
  11. NOVOLOG [Concomitant]
     Indication: DIABETES MELLITUS
     Route: 058
     Dates: start: 2011
  12. TRAMADOL [Concomitant]
     Indication: PAIN
     Route: 065
     Dates: start: 2012

REACTIONS (4)
  - Breath sounds abnormal [Unknown]
  - Joint swelling [Unknown]
  - Heart rate increased [Unknown]
  - Arthritis [Not Recovered/Not Resolved]
